FAERS Safety Report 4287113-2 (Version None)
Quarter: 2004Q1

REPORT INFORMATION
  Report Type: 
  Country: None (occurrence: None)
  Receive Date: 20040205
  Receipt Date: 20040123
  Transmission Date: 20041129
  Serious: Yes (Other)
  Sender: FDA-Public Use
  Company Number: 2004005042

PATIENT
  Age: 28 Year
  Sex: Female

DRUGS (1)
  1. PIROXICAM [Suspect]
     Indication: ILL-DEFINED DISORDER
     Dosage: 20 MG (BID), ORAL
     Route: 048
     Dates: start: 20040116, end: 20040121

REACTIONS (5)
  - ATAXIA [None]
  - BRADYPHRENIA [None]
  - DYSARTHRIA [None]
  - ENCEPHALOPATHY [None]
  - THERAPEUTIC AGENT TOXICITY [None]
